FAERS Safety Report 6027364-X (Version None)
Quarter: 2009Q1

REPORT INFORMATION
  Report Type: 
  Country: None (occurrence: None)
  Receive Date: 20090105
  Receipt Date: 20081223
  Transmission Date: 20090719
  Serious: Yes (Hospitalization)
  Sender: FDA-Public Use
  Company Number: B0552165A

PATIENT
  Age: 64 Year
  Sex: Female

DRUGS (12)
  1. LANOXIN [Suspect]
     Indication: DRUG USE FOR UNKNOWN INDICATION
     Route: 048
  2. AMIODARONE HYDROCHLORIDE [Suspect]
     Indication: DRUG USE FOR UNKNOWN INDICATION
     Dosage: 200MG PER DAY
     Route: 048
  3. NEBIVOLOL HCL [Suspect]
     Indication: DRUG USE FOR UNKNOWN INDICATION
     Route: 048
  4. FUROSEMIDE [Concomitant]
     Route: 048
  5. ESCITALOPRAM [Concomitant]
     Route: 048
  6. CLOXAZOLAM [Concomitant]
     Route: 048
  7. SPIRONOLACTONE [Concomitant]
     Route: 048
  8. AMLODIPINE [Concomitant]
     Route: 048
  9. LEVOTHYROXINE SODIUM [Concomitant]
     Dosage: .1MG PER DAY
     Route: 048
  10. WARFARIN SODIUM [Concomitant]
     Dosage: 2.5MG PER DAY
     Route: 048
  11. NIFEDIPINE [Concomitant]
     Dosage: 20MG TWICE PER DAY
  12. CAPTOPRIL [Concomitant]
     Dosage: 25MG THREE TIMES PER DAY

REACTIONS (3)
  - BRADYCARDIA [None]
  - CARDIAC FAILURE CONGESTIVE [None]
  - DRUG INTERACTION [None]
